FAERS Safety Report 5253096-1 (Version None)
Quarter: 2007Q1

REPORT INFORMATION
  Report Type: 
  Country: None (occurrence: None)
  Receive Date: 20070301
  Receipt Date: 20061201
  Transmission Date: 20070707
  Serious: Yes (Other)
  Sender: FDA-Public Use
  Company Number: DE-GILEAD-2005-0008947

PATIENT
  Sex: Female
  Weight: 94.7 kg

DRUGS (6)
  1. VIREAD [Suspect]
     Indication: HIV INFECTION
     Dates: start: 20050118, end: 20050202
  2. COMBIVIR [Concomitant]
     Indication: HIV INFECTION
     Dates: start: 20050118, end: 20050202
  3. PRESTINOL [Concomitant]
     Indication: HYPERTONIA
     Dates: start: 20041028
  4. IRON [Concomitant]
     Indication: PREGNANCY
     Dates: start: 20041202, end: 20050101
  5. FOLIC ACID [Concomitant]
     Indication: PREGNANCY
     Dates: start: 20040101, end: 20041202
  6. MAGNESIUM [Concomitant]
     Indication: PREGNANCY
     Dates: start: 20050118, end: 20050101

REACTIONS (4)
  - GESTATIONAL DIABETES [None]
  - MIGRAINE [None]
  - PRE-ECLAMPSIA [None]
  - PREGNANCY [None]
